FAERS Safety Report 20972161 (Version 5)
Quarter: 2025Q1

REPORT INFORMATION
  Report Type: Spontaneous
  Country: US (occurrence: US)
  Receive Date: 20220616
  Receipt Date: 20250210
  Transmission Date: 20250409
  Serious: No
  Sender: SANOFI AVENTIS
  Company Number: US-SA-SAC20220613001851

PATIENT
  Age: 71 Year
  Sex: Female

DRUGS (2)
  1. DUPIXENT [Suspect]
     Active Substance: DUPILUMAB
     Indication: Dermatitis atopic
     Dosage: 300 MG, QW
     Route: 058
     Dates: start: 20190110, end: 201901
  2. DUPIXENT [Suspect]
     Active Substance: DUPILUMAB
     Dosage: 300 MG, QOW
     Route: 058
     Dates: start: 201901

REACTIONS (10)
  - Stress [Unknown]
  - Skin swelling [Recovered/Resolved]
  - Condition aggravated [Recovered/Resolved]
  - Rash erythematous [Unknown]
  - Skin burning sensation [Unknown]
  - Condition aggravated [Unknown]
  - Pruritus [Recovering/Resolving]
  - Dermatitis atopic [Not Recovered/Not Resolved]
  - Rash [Unknown]
  - Inappropriate schedule of product administration [Unknown]

NARRATIVE: CASE EVENT DATE: 20190117
